FAERS Safety Report 7713238-2 (Version None)
Quarter: 2011Q3

REPORT INFORMATION
  Report Type: 
  Country: None (occurrence: None)
  Receive Date: 20110826
  Receipt Date: 20110825
  Transmission Date: 20111222
  Serious: Yes (Other)
  Sender: FDA-Public Use
  Company Number: US-AMGEN-USASP2011039518

PATIENT
  Age: 60 Year
  Sex: Female

DRUGS (1)
  1. ENBREL [Suspect]
     Indication: RHEUMATOID ARTHRITIS
     Dosage: 50 MG, QWK
     Dates: start: 20110727

REACTIONS (7)
  - DEPRESSION [None]
  - CRYING [None]
  - FATIGUE [None]
  - OROPHARYNGEAL PAIN [None]
  - COUGH [None]
  - CHEST DISCOMFORT [None]
  - INSOMNIA [None]
